FAERS Safety Report 25146722 (Version 1)
Quarter: 2025Q2

REPORT INFORMATION
  Report Type: Report from Study
  Country: US (occurrence: US)
  Receive Date: 20250401
  Receipt Date: 20250401
  Transmission Date: 20250717
  Serious: Yes (Life-Threatening, Hospitalization)
  Sender: BIOGEN
  Company Number: US-BIOGEN-2025BI01305477

PATIENT
  Age: 64 Year
  Sex: Female

DRUGS (1)
  1. VUMERITY [Suspect]
     Active Substance: DIROXIMEL FUMARATE
     Indication: Multiple sclerosis
     Route: 050
     Dates: start: 20241212

REACTIONS (6)
  - Urosepsis [Not Recovered/Not Resolved]
  - Fall [Recovered/Resolved]
  - Gait inability [Not Recovered/Not Resolved]
  - Motor dysfunction [Unknown]
  - Lethargy [Unknown]
  - Dysuria [Not Recovered/Not Resolved]

NARRATIVE: CASE EVENT DATE: 20250225
